FAERS Safety Report 8786027 (Version 3)
Quarter: 2012Q4

REPORT INFORMATION
  Report Type: 
  Country: GB (occurrence: GB)
  Receive Date: 20120914
  Receipt Date: 20121123
  Transmission Date: 20130627
  Serious: Yes (Hospitalization)
  Sender: FDA-Public Use
  Company Number: PHFR2012GB004947

PATIENT
  Sex: Male

DRUGS (6)
  1. CLOZARIL [Suspect]
     Indication: SCHIZOPHRENIA
     Route: 048
     Dates: start: 20120801
  2. ESCITALOPRAM [Concomitant]
     Indication: DEPRESSION
     Dosage: 10 mg, UNK
     Route: 048
  3. QVAR [Concomitant]
     Indication: CHRONIC OBSTRUCTIVE PULMONARY DISEASE
     Dosage: 2 DF, BID
  4. NASONEX [Concomitant]
     Indication: CHRONIC OBSTRUCTIVE PULMONARY DISEASE
     Dosage: 1 DF, QD
  5. ORLISTAT [Concomitant]
     Indication: OBESITY
     Dosage: 120 mg, TID
  6. RANITIDINE [Concomitant]
     Indication: GASTROOESOPHAGEAL REFLUX DISEASE
     Dosage: 150 mg, BID
     Route: 048

REACTIONS (6)
  - Asthma [Unknown]
  - Sedation [Recovering/Resolving]
  - Lower respiratory tract infection [Unknown]
  - Salivary hypersecretion [Recovering/Resolving]
  - Somnolence [Recovering/Resolving]
  - Glucose tolerance impaired [Not Recovered/Not Resolved]
